FAERS Safety Report 6720257-1 (Version None)
Quarter: 2010Q2

REPORT INFORMATION
  Report Type: 
  Country: None (occurrence: None)
  Receive Date: 20100506
  Receipt Date: 20100421
  Transmission Date: 20101027
  Serious: Yes (Hospitalization)
  Sender: FDA-Public Use
  Company Number: 011079

PATIENT
  Sex: Female
  Weight: 43 kg

DRUGS (3)
  1. CERTOLIZUMAB PEGOL (CERTOLIZUMAB PEGOL) [Suspect]
     Indication: CROHN'S DISEASE
     Dosage: (400 MG 1X/MONTH SUBCUTANEOUS)
     Route: 058
     Dates: start: 20050131, end: 20100329
  2. PREDNISOLONE [Concomitant]
  3. SALOFALK /00000301/ [Concomitant]

REACTIONS (6)
  - ABSCESS [None]
  - CONDITION AGGRAVATED [None]
  - CROHN'S DISEASE [None]
  - GENERAL PHYSICAL HEALTH DETERIORATION [None]
  - PROCTALGIA [None]
  - PURULENCE [None]
